FAERS Safety Report 6259150-X (Version None)
Quarter: 2009Q3

REPORT INFORMATION
  Report Type: 
  Country: None (occurrence: None)
  Receive Date: 20090702
  Receipt Date: 20090618
  Transmission Date: 20100115
  Serious: Yes (Death)
  Sender: FDA-Public Use
  Company Number: 2008AL012435

PATIENT
  Age: 59 Year
  Sex: Male

DRUGS (1)
  1. DIGOXIN           (AMIDE) [Suspect]
     Indication: ATRIAL FIBRILLATION
     Dosage: PO
     Route: 048

REACTIONS (6)
  - ANXIETY [None]
  - CORONARY ARTERY DISEASE [None]
  - DIABETES MELLITUS [None]
  - INJURY [None]
  - PAIN [None]
  - PULMONARY EMBOLISM [None]
